FAERS Safety Report 16525935 (Version 1)
Quarter: 2019Q3

REPORT INFORMATION
  Report Type: Spontaneous
  Country: US (occurrence: US)
  Receive Date: 20190703
  Receipt Date: 20190703
  Transmission Date: 20191004
  Serious: Yes (Other)
  Sender: FDA-Public Use
  Company Number: US-JNJFOC-20190626909

PATIENT
  Sex: Female
  Weight: 68.1 kg

DRUGS (1)
  1. NEUTROGENA ULTRA SHEER [Suspect]
     Active Substance: AVOBENZONE\HOMOSALATE\OCTISALATE\OCTOCRYLENE\OXYBENZONE
     Indication: PROPHYLAXIS AGAINST SOLAR RADIATION
     Dosage: RECOMMENDED AMOUNT
     Route: 061

REACTIONS (2)
  - Application site exfoliation [Unknown]
  - Precancerous skin lesion [Unknown]
